FAERS Safety Report 7205138 (Version 9)
Quarter: 2013Q3

REPORT INFORMATION
  Report Type: Report from Study
  Country: US (occurrence: US)
  Receive Date: 20091208
  Receipt Date: 20130712
  Transmission Date: 20140515
  Serious: Yes (Hospitalization)
  Sender: FDA-Public Use
  Company Number: US-ROCHE-672562

PATIENT
  Age: 67 Year
  Sex: Female
  Weight: 78 kg

DRUGS (7)
  1. BEVACIZUMAB [Suspect]
     Indication: HER-2 POSITIVE BREAST CANCER
     Dosage: DOSE LEVEL: 15 MG/KG. FORM VIALS.
     Route: 042
     Dates: start: 20091120, end: 20091204
  2. TRASTUZUMAB [Suspect]
     Indication: HER-2 POSITIVE BREAST CANCER
     Dosage: DOSE LEVEL: 8 MG/KG. DOSAGE FORM: VIALS.STUDY DRUG ALTERED IN RESPONSE TO EVENT: UNDECIDED.
     Route: 042
     Dates: start: 20091120, end: 20091204
  3. DOCETAXEL [Suspect]
     Indication: HER-2 POSITIVE BREAST CANCER
     Dosage: DOSE LEVEL: 75 MG/M2. DOSAGE FORM: VIALS.
     Route: 042
     Dates: start: 20091120, end: 20091204
  4. CARBOPLATIN [Suspect]
     Indication: HER-2 POSITIVE BREAST CANCER
     Dosage: DOSE LEVEL: 6 AUC, FORM VIALS.
     Route: 042
     Dates: start: 20091120, end: 20091204
  5. DIOVAN HCT [Concomitant]
     Dosage: FREQUENCY: DAILY, NAME: DIOVAN HCTZ
     Route: 065
  6. METFORMIN [Concomitant]
     Route: 065
  7. CIPROFLOXACIN [Concomitant]
     Route: 065
     Dates: start: 20091127, end: 20091209

REACTIONS (2)
  - Dehydration [Recovering/Resolving]
  - Hepatic function abnormal [Recovered/Resolved]
